FAERS Safety Report 11574366 (Version 2)
Quarter: 2015Q4

REPORT INFORMATION
  Report Type: Spontaneous
  Country: CA (occurrence: CA)
  Receive Date: 20150930
  Receipt Date: 20151026
  Transmission Date: 20160304
  Serious: Yes (Disabling, Other)
  Sender: FDA-Public Use
  Company Number: CA-009507513-1509CAN012799

PATIENT
  Age: 88 Year
  Sex: Female
  Weight: 50.4 kg

DRUGS (13)
  1. PREDNISONE. [Concomitant]
     Active Substance: PREDNISONE
     Dosage: 20 MG, QAM
     Route: 048
  2. SENOKOT [Concomitant]
     Active Substance: SENNOSIDES
     Dosage: 8,6 MGX2,BID
     Route: 048
  3. FENTANYL. [Concomitant]
     Active Substance: FENTANYL
     Dosage: 25 DF, UNK
     Dates: start: 20130715
  4. KEYTRUDA [Suspect]
     Active Substance: PEMBROLIZUMAB
     Indication: RENAL CANCER
     Dosage: 100 MG, Q3W
     Route: 042
     Dates: start: 20150809
  5. FENTANYL. [Concomitant]
     Active Substance: FENTANYL
     Dosage: 37.5 DF, UNK
     Dates: start: 201412
  6. AVENTYL [Concomitant]
     Dosage: 10 MG, 1 OR 2 BEFORE BED
     Route: 048
  7. FENTANYL. [Concomitant]
     Active Substance: FENTANYL
     Dosage: 50 MICROGRAM, AT 5:30PM
     Dates: start: 20120702
  8. COLACE [Concomitant]
     Active Substance: DOCUSATE SODIUM
     Dosage: 100MGX2, BID
     Route: 048
  9. LYRICA [Concomitant]
     Active Substance: PREGABALIN
     Dosage: 150 MG, BID
     Route: 048
  10. DOMPERIDONE [Concomitant]
     Active Substance: DOMPERIDONE
     Dosage: 10 MG, QID
     Route: 048
  11. LACTULOSE. [Concomitant]
     Active Substance: LACTULOSE
     Dosage: 30 ML, AS NEEDED
  12. FENTANYL. [Concomitant]
     Active Substance: FENTANYL
     Dosage: 50 DF, UNK
     Dates: start: 201507
  13. METADOL [Concomitant]
     Dosage: 5 MG, TID
     Route: 048

REACTIONS (4)
  - Pain in extremity [Not Recovered/Not Resolved]
  - Chest pain [Not Recovered/Not Resolved]
  - Musculoskeletal pain [Not Recovered/Not Resolved]
  - Off label use [Unknown]

NARRATIVE: CASE EVENT DATE: 20150809
